FAERS Safety Report 5033047-5 (Version None)
Quarter: 2006Q2

REPORT INFORMATION
  Report Type: 
  Country: None (occurrence: None)
  Receive Date: 20060622
  Receipt Date: 20060531
  Transmission Date: 20061013
  Serious: Yes (Hospitalization)
  Sender: FDA-Public Use
  Company Number: US-ROCHE-450332

PATIENT
  Age: 49 Year
  Sex: Female
  Weight: 79.4 kg

DRUGS (17)
  1. PEG-INTERFERON ALFA 2A (RO 25-8310) [Suspect]
     Indication: HEPATITIS C
     Route: 058
     Dates: start: 20050906
  2. RIBAVIRIN [Suspect]
     Indication: HEPATITIS C
     Route: 048
     Dates: start: 20050906
  3. ZOLOFT [Concomitant]
     Indication: MOOD SWINGS
     Dosage: INDICATION: MOOD SWINGS, AGITATION.
     Dates: start: 20020615
  4. HYDROXYZINE [Concomitant]
     Dates: start: 20040515
  5. IBUPROFEN [Concomitant]
     Dates: start: 20050906
  6. DIPHENHYDRAMINE HCL [Concomitant]
     Dosage: INDICATION: ITCHING, SLEEP.
     Dates: start: 20050909
  7. LORATADINE [Concomitant]
     Dates: start: 20050907
  8. PROMETHAZINE [Concomitant]
     Indication: NAUSEA
     Dates: start: 20050922
  9. LORAZEPAM [Concomitant]
     Indication: INSOMNIA
     Dates: start: 20050922
  10. ESTROVEN [Concomitant]
     Dates: start: 20050501
  11. MULTIVITAMIN NOS [Concomitant]
     Dates: start: 19970615
  12. CALCIUM GLUCONATE [Concomitant]
  13. GLUCOSAMINE [Concomitant]
     Dates: start: 20020615
  14. CHONDROITIN SULFATE [Concomitant]
     Dates: start: 20020615
  15. FISH OIL [Concomitant]
     Dates: start: 20020615
  16. SUPPLEMENTS [Concomitant]
     Dosage: REPORTED AS NUTRITIONAL SUPPLEMENTS LIFE'S GREENS.
     Dates: start: 20030515
  17. VITAMIN B-12 [Concomitant]
     Dates: start: 20051027

REACTIONS (13)
  - ABDOMINAL PAIN UPPER [None]
  - ATELECTASIS [None]
  - CHEST X-RAY ABNORMAL [None]
  - CHOLECYSTITIS [None]
  - FLATULENCE [None]
  - GALLBLADDER DISORDER [None]
  - HAEMATOCRIT DECREASED [None]
  - HAEMOGLOBIN DECREASED [None]
  - HEPATIC STEATOSIS [None]
  - HIATUS HERNIA [None]
  - NEPHROLITHIASIS [None]
  - PLEURAL EFFUSION [None]
  - VOMITING [None]
